FAERS Safety Report 7601723-3 (Version None)
Quarter: 2011Q2

REPORT INFORMATION
  Report Type: 
  Country: None (occurrence: None)
  Receive Date: 20110629
  Receipt Date: 20110126
  Transmission Date: 20111010
  Serious: Yes (Life-Threatening)
  Sender: FDA-Public Use
  Company Number: 758343

PATIENT
  Age: 31 Year
  Sex: Male
  Weight: 111.6 kg

DRUGS (1)
  1. KLONOPIN [Suspect]
     Indication: PRODUCT USED FOR UNKNOWN INDICATION
     Dosage: 1 MG 1 PER 1 DAY ORAL
     Route: 048
     Dates: start: 20101115, end: 20110114

REACTIONS (1)
  - SUICIDE ATTEMPT [None]
